FAERS Safety Report 10617180 (Version 2)
Quarter: 2014Q4

REPORT INFORMATION
  Report Type: Spontaneous
  Country: IT (occurrence: IT)
  Receive Date: 20141201
  Receipt Date: 20141203
  Transmission Date: 20150529
  Serious: Yes (Hospitalization)
  Sender: FDA-Public Use
  Company Number: IT-SA-2014SA162010

PATIENT
  Age: 83 Year
  Sex: Female

DRUGS (7)
  1. PLAVIX [Suspect]
     Active Substance: CLOPIDOGREL BISULFATE
     Indication: ACUTE MYOCARDIAL INFARCTION
     Route: 048
     Dates: start: 20120809, end: 20141106
  2. LANSOPRAZOLE. [Concomitant]
     Active Substance: LANSOPRAZOLE
     Route: 048
     Dates: start: 20120809, end: 20141106
  3. CARDIOASPIRIN [Concomitant]
     Active Substance: ASPIRIN
     Dosage: STRENGTH:100MG.
     Route: 048
     Dates: start: 20120809, end: 20141106
  4. SIVASTIN [Concomitant]
     Active Substance: SIMVASTATIN
     Dates: start: 20120809, end: 20141106
  5. MODURETIC 5-50 [Concomitant]
     Active Substance: AMILORIDE HYDROCHLORIDE\HYDROCHLOROTHIAZIDE
     Dosage: ^5 MG + 50 MG TABLETS
     Route: 048
     Dates: start: 20120809, end: 20141106
  6. GABAPENTIN. [Concomitant]
     Active Substance: GABAPENTIN
     Dates: start: 20120809, end: 20141106
  7. FOSIPRES [Concomitant]
     Active Substance: FOSINOPRIL
     Dates: start: 20120809, end: 20141106

REACTIONS (1)
  - Mallory-Weiss syndrome [Recovering/Resolving]

NARRATIVE: CASE EVENT DATE: 20141106
